FAERS Safety Report 7247183-6 (Version None)
Quarter: 2011Q1

REPORT INFORMATION
  Report Type: 
  Country: None (occurrence: None)
  Receive Date: 20110127
  Receipt Date: 20110118
  Transmission Date: 20110831
  Serious: Yes (Other)
  Sender: FDA-Public Use
  Company Number: CA-JNJFOC-20110104973

PATIENT
  Sex: Female
  Weight: 58 kg

DRUGS (2)
  1. TRANDATE [Concomitant]
  2. REMICADE [Suspect]
     Indication: CROHN'S DISEASE
     Route: 042

REACTIONS (2)
  - PHARYNGITIS STREPTOCOCCAL [None]
  - OVARIAN CYST [None]
